FAERS Safety Report 5757896-0 (Version None)
Quarter: 2008Q2

REPORT INFORMATION
  Report Type: 
  Country: None (occurrence: None)
  Receive Date: 20080602
  Receipt Date: 20080602
  Transmission Date: 20081010
  Serious: No
  Sender: FDA-Public Use
  Company Number: None

PATIENT
  Age: 71 Year
  Sex: Female
  Weight: 58.9676 kg

DRUGS (3)
  1. DIGOXIN [Suspect]
     Indication: ATRIAL FLUTTER
     Dosage: SEE B.5.
     Dates: start: 20080126
  2. ASPIRIN [Concomitant]
  3. MAGNESIUM [Concomitant]

REACTIONS (7)
  - ABNORMAL DREAMS [None]
  - DRUG LEVEL FLUCTUATING [None]
  - DYSPEPSIA [None]
  - FATIGUE [None]
  - INSOMNIA [None]
  - JOINT SWELLING [None]
  - RASH MACULO-PAPULAR [None]
